FAERS Safety Report 8010399-5 (Version None)
Quarter: 2011Q4

REPORT INFORMATION
  Report Type: 
  Country: None (occurrence: None)
  Receive Date: 20111228
  Receipt Date: 20111220
  Transmission Date: 20120403
  Serious: Yes (Death)
  Sender: FDA-Public Use
  Company Number: US-ENDO PHARMACEUTICALS INC.-METO20113244

PATIENT
  Age: 19 Year
  Sex: Male

DRUGS (6)
  1. ACETAMINOPHEN AND HYDROCODONE BITARTRATE [Concomitant]
     Indication: PRODUCT USED FOR UNKNOWN INDICATION
     Dosage: UNK
  2. METOCLOPRAMIDE HCL [Suspect]
     Indication: OESOPHAGITIS
  3. PROTONIX [Concomitant]
     Indication: PRODUCT USED FOR UNKNOWN INDICATION
  4. METOCLOPRAMIDE HCL [Suspect]
     Indication: PREOPERATIVE CARE
  5. METOCLOPRAMIDE HCL [Suspect]
     Indication: GASTRIC ULCER
     Route: 048
     Dates: start: 20080612
  6. METOCLOPRAMIDE HCL [Suspect]
     Indication: GASTRITIS

REACTIONS (13)
  - FEELING ABNORMAL [None]
  - SUICIDAL IDEATION [None]
  - AKATHISIA [None]
  - INCORRECT DRUG ADMINISTRATION DURATION [None]
  - COMPLETED SUICIDE [None]
  - MENTAL IMPAIRMENT [None]
  - AGITATION [None]
  - DELUSION [None]
  - DEPRESSION [None]
  - AGGRESSION [None]
  - EXTRAPYRAMIDAL DISORDER [None]
  - HALLUCINATION [None]
  - ANXIETY [None]
